FAERS Safety Report 5734099-7 (Version None)
Quarter: 2008Q2

REPORT INFORMATION
  Report Type: 
  Country: None (occurrence: None)
  Receive Date: 20080509
  Receipt Date: 20080429
  Transmission Date: 20081010
  Serious: Yes (Hospitalization, Other)
  Sender: FDA-Public Use
  Company Number: FR-ABBOTT-05P-056-0287039-00

PATIENT
  Age: 82 Year
  Sex: Female

DRUGS (7)
  1. HUMIRA [Suspect]
     Indication: POLYARTHRITIS
     Route: 058
     Dates: start: 20041101, end: 20041210
  2. HUMIRA [Suspect]
     Route: 058
  3. RISEDRONIC ACID [Suspect]
     Indication: POLYARTHRITIS
     Route: 048
  4. PREDNISONE TAB [Suspect]
     Indication: POLYARTHRITIS
     Route: 048
     Dates: start: 20040415, end: 20040501
  5. PREDNISONE TAB [Suspect]
     Route: 048
     Dates: start: 20040501
  6. METHOTREXATE [Suspect]
     Indication: POLYARTHRITIS
     Route: 048
     Dates: start: 20040415, end: 20040501
  7. METHOTREXATE [Suspect]
     Route: 048
     Dates: start: 20040808

REACTIONS (4)
  - ARTHRITIS [None]
  - FUNGAL INFECTION [None]
  - HERPES ZOSTER [None]
  - HIP ARTHROPLASTY [None]
